FAERS Safety Report 14723109 (Version 1)
Quarter: 2018Q2

REPORT INFORMATION
  Report Type: Spontaneous
  Country: US (occurrence: US)
  Receive Date: 20180405
  Receipt Date: 20180405
  Transmission Date: 20180711
  Serious: Yes (Death, Other)
  Sender: FDA-Public Use
  Company Number: US-ABBVIE-18P-163-2312270-00

PATIENT
  Sex: Female

DRUGS (1)
  1. LUPRON DEPOT [Suspect]
     Active Substance: LEUPROLIDE ACETATE
     Indication: DEMENTIA ALZHEIMER^S TYPE
     Dosage: 22.5 MG, UNK
     Route: 030

REACTIONS (2)
  - Respiratory failure [Fatal]
  - Off label use [Unknown]
